FAERS Safety Report 8922320 (Version 2)
Quarter: 2017Q1

REPORT INFORMATION
  Report Type: Spontaneous
  Country: CO (occurrence: CO)
  Receive Date: 20121123
  Receipt Date: 20170125
  Transmission Date: 20170429
  Serious: Yes (Hospitalization)
  Sender: FDA-Public Use
  Company Number: CO-AMGEN-COLSP2012043161

PATIENT
  Age: 59 Year
  Sex: Female

DRUGS (16)
  1. PREDNISOLONE. [Concomitant]
     Active Substance: PREDNISOLONE
     Indication: RHEUMATOID ARTHRITIS
     Dosage: 1/2 TABLET OF 5 MG PER DAY ORALLY
     Route: 048
  2. FOLIC ACID. [Concomitant]
     Active Substance: FOLIC ACID
     Dosage: 1 MG, 1X/DAY
     Route: 048
     Dates: start: 2009
  3. PREDNISOLONE. [Concomitant]
     Active Substance: PREDNISOLONE
     Dosage: 1/2 TABLET OF 5 MG PER DAY ORALLY
     Route: 048
     Dates: start: 2003
  4. METHOTREXATE. [Concomitant]
     Active Substance: METHOTREXATE
     Dosage: UNK UNK, QD
  5. VITAMIN C [Concomitant]
     Active Substance: ASCORBIC ACID
     Dosage: 1 TABLET PER DAY ORALLY
     Route: 048
  6. CHLOROQUINE. [Concomitant]
     Active Substance: CHLOROQUINE
     Dosage: 1 TABLET PER DAY FROM MONDAY TO FRIDAY
     Route: 048
  7. CHLOROQUINE. [Concomitant]
     Active Substance: CHLOROQUINE
     Dosage: 1 TABLET PER DAY FROM MONDAY TO FRIDAY
     Route: 048
  8. CALCITRIOL. [Concomitant]
     Active Substance: CALCITRIOL
     Indication: OSTEOPOROSIS
     Dosage: UNK
     Route: 048
     Dates: start: 201201
  9. ENBREL [Suspect]
     Active Substance: ETANERCEPT
     Dosage: 50 MG, QWK
     Route: 058
  10. OMEPRAZOLE. [Concomitant]
     Active Substance: OMEPRAZOLE
     Indication: GASTRITIS
     Dosage: 1 TABLET PER DAY ORALLY
     Route: 048
     Dates: start: 2009
  11. DICLOFENAC [Concomitant]
     Active Substance: DICLOFENAC
     Dosage: UNK
  12. ENBREL [Suspect]
     Active Substance: ETANERCEPT
     Indication: RHEUMATOID ARTHRITIS
     Dosage: 50 MG, WEEKLY
     Route: 058
     Dates: start: 201205, end: 201207
  13. ENALAPRIL [Concomitant]
     Active Substance: ENALAPRIL
     Dosage: 2 TABLET OF 20 MG PER DAY ORALLY
     Route: 048
  14. ENBREL [Suspect]
     Active Substance: ETANERCEPT
     Dosage: UNK
     Route: 065
  15. ENBREL [Suspect]
     Active Substance: ETANERCEPT
     Dosage: UNK
     Route: 065
  16. ACETAMINOPHEN. [Concomitant]
     Active Substance: ACETAMINOPHEN
     Dosage: AS NECESSARY, UNK

REACTIONS (12)
  - Dry skin [Not Recovered/Not Resolved]
  - Hypersensitivity [Recovered/Resolved]
  - Immune system disorder [Recovered/Resolved]
  - Peripheral swelling [Recovered/Resolved]
  - Haematoma [Not Recovered/Not Resolved]
  - Haemoglobin decreased [Recovered/Resolved]
  - Arthralgia [Not Recovered/Not Resolved]
  - Wheelchair user [Not Recovered/Not Resolved]
  - Pruritus generalised [Not Recovered/Not Resolved]
  - Urticaria [Recovered/Resolved]
  - Drug ineffective [Unknown]
  - Inflammation [Not Recovered/Not Resolved]

NARRATIVE: CASE EVENT DATE: 201206
